FAERS Safety Report 8954382 (Version 1)
Quarter: 2012Q4

REPORT INFORMATION
  Report Type: 
  Country: ZA (occurrence: ZA)
  Receive Date: 20121210
  Receipt Date: 20121210
  Transmission Date: 20130627
  Serious: Yes (Hospitalization)
  Sender: FDA-Public Use
  Company Number: ZA-AMGEN-ZAFSP2012078717

PATIENT
  Age: 48 Year
  Sex: Male

DRUGS (8)
  1. ARANESP [Suspect]
     Indication: RENAL FAILURE CHRONIC
     Dosage: 40 mug, q2wk
     Route: 058
     Dates: start: 20110916
  2. CARDICOR [Concomitant]
     Dosage: 2.5 mg, qd
     Route: 048
  3. CARZIN [Concomitant]
     Dosage: 4 mg, qd
     Route: 048
  4. RAMIPRIL [Concomitant]
     Dosage: 10 mg, qd
     Route: 048
  5. PREDNISONE [Concomitant]
     Dosage: 5 mg, qd
     Route: 048
  6. AZATHIOPRINE [Concomitant]
     Dosage: 75 mg, qd
     Route: 048
  7. ASPIRIN CARDIO [Concomitant]
     Dosage: 100 mg, qd
     Route: 048
  8. PURICOS [Concomitant]
     Dosage: 150 mg, qd
     Route: 048

REACTIONS (2)
  - Arthralgia [Not Recovered/Not Resolved]
  - Myalgia [Not Recovered/Not Resolved]
